FAERS Safety Report 19276836 (Version 2)
Quarter: 2021Q2

REPORT INFORMATION
  Report Type: Spontaneous
  Country: US (occurrence: US)
  Receive Date: 20210519
  Receipt Date: 20210608
  Transmission Date: 20210717
  Serious: Yes (Hospitalization, Other)
  Sender: FDA-Public Use
  Company Number: US-IBSA PHARMA INC.-2021IBS000088

PATIENT

DRUGS (2)
  1. TIROSINT?SOL [Suspect]
     Active Substance: LEVOTHYROXINE SODIUM
     Indication: HYPOTHYROIDISM
     Dosage: 88 ?G, QD
     Route: 048
     Dates: end: 20210504
  2. TIROSINT?SOL [Suspect]
     Active Substance: LEVOTHYROXINE SODIUM
     Dosage: 88 ?G, QD
     Route: 048
     Dates: start: 202105

REACTIONS (9)
  - Vertigo [Recovered/Resolved]
  - Nausea [Recovering/Resolving]
  - Pain [Recovered/Resolved]
  - Allergy to chemicals [Recovered/Resolved]
  - Vomiting [Recovered/Resolved]
  - Movement disorder [Recovered/Resolved]
  - Palpitations [Recovered/Resolved]
  - Dizziness [Recovered/Resolved]
  - Heart rate increased [Recovered/Resolved]

NARRATIVE: CASE EVENT DATE: 2021
